FAERS Safety Report 14586101 (Version 2)
Quarter: 2018Q1

REPORT INFORMATION
  Report Type: Report from Study
  Country: CA (occurrence: CA)
  Receive Date: 20180301
  Receipt Date: 20180323
  Transmission Date: 20180509
  Serious: Yes (Other)
  Sender: FDA-Public Use
  Company Number: PHHY2018CA019925

PATIENT
  Age: 44 Year
  Sex: Male

DRUGS (1)
  1. GILENYA [Suspect]
     Active Substance: FINGOLIMOD HYDROCHLORIDE
     Indication: RELAPSING-REMITTING MULTIPLE SCLEROSIS
     Dosage: 0.5 MG, QD
     Route: 048
     Dates: start: 20180201

REACTIONS (10)
  - Headache [Recovered/Resolved]
  - Dizziness [Recovered/Resolved]
  - Crohn^s disease [Recovering/Resolving]
  - Loss of consciousness [Recovered/Resolved]
  - Influenza like illness [Unknown]
  - Hot flush [Unknown]
  - Head injury [Recovered/Resolved]
  - Sinus arrhythmia [Unknown]
  - Diarrhoea [Unknown]
  - Blood pressure fluctuation [Unknown]

NARRATIVE: CASE EVENT DATE: 20180202
